FAERS Safety Report 6068249-2 (Version None)
Quarter: 2009Q1

REPORT INFORMATION
  Report Type: 
  Country: None (occurrence: None)
  Receive Date: 20090206
  Receipt Date: 20090126
  Transmission Date: 20090719
  Serious: Yes (Other)
  Sender: FDA-Public Use
  Company Number: PHHY2009GB03014

PATIENT
  Sex: Male

DRUGS (1)
  1. CLOZARIL [Suspect]
     Indication: SCHIZOPHRENIA
     Dosage: UNK
     Dates: start: 20090116

REACTIONS (5)
  - HEADACHE [None]
  - HEART RATE INCREASED [None]
  - MALAISE [None]
  - NAUSEA [None]
  - SKIN INFECTION [None]
